FAERS Safety Report 18851684 (Version 1)
Quarter: 2021Q1

REPORT INFORMATION
  Report Type: Spontaneous
  Country: US (occurrence: US)
  Receive Date: 20210204
  Receipt Date: 20210204
  Transmission Date: 20210420
  Serious: No
  Sender: FDA-Public Use
  Company Number: None

PATIENT
  Age: 27 Year
  Sex: Male
  Weight: 114 kg

DRUGS (1)
  1. VARENICLINE (VARENICLINE TAB STARTER PACK, 53) [Suspect]
     Active Substance: VARENICLINE
     Dates: start: 20201216, end: 20210121

REACTIONS (1)
  - Suicidal ideation [None]

NARRATIVE: CASE EVENT DATE: 20210121
